FAERS Safety Report 6025779-7 (Version None)
Quarter: 2008Q4

REPORT INFORMATION
  Report Type: 
  Country: None (occurrence: None)
  Receive Date: 20081224
  Receipt Date: 20081217
  Transmission Date: 20090506
  Serious: Yes (Other)
  Sender: FDA-Public Use
  Company Number: 233136K08USA

PATIENT
  Age: 54 Year
  Sex: Female

DRUGS (1)
  1. REBIF [Suspect]
     Indication: MULTIPLE SCLEROSIS
     Dosage: 8.8 MCG, 3 IN 1 WEEKS, SUBCUTANEOUS
     Route: 058
     Dates: start: 20081121

REACTIONS (5)
  - ARTHROPATHY [None]
  - FATIGUE [None]
  - INFLUENZA LIKE ILLNESS [None]
  - PANIC ATTACK [None]
  - SUICIDAL IDEATION [None]
